FAERS Safety Report 15723524 (Version 2)
Quarter: 2019Q2

REPORT INFORMATION
  Report Type: Report from Study
  Country: US (occurrence: US)
  Receive Date: 20181214
  Receipt Date: 20190412
  Transmission Date: 20190711
  Serious: Yes (Hospitalization, Other)
  Sender: FDA-Public Use
  Company Number: US-SA-2018SA338788

PATIENT
  Age: 52 Year
  Sex: Female

DRUGS (1)
  1. ALEMTUZUMAB [Suspect]
     Active Substance: ALEMTUZUMAB
     Indication: MULTIPLE SCLEROSIS
     Dosage: 12 MG, QD
     Route: 041
     Dates: start: 20180806, end: 20180808

REACTIONS (12)
  - Liver function test increased [Unknown]
  - Blood urine present [Unknown]
  - Peripheral swelling [Unknown]
  - Diarrhoea [Unknown]
  - Dyspnoea [Unknown]
  - Pyrexia [Unknown]
  - Neutrophil count increased [Unknown]
  - Pseudomonas infection [Recovered/Resolved]
  - Pyrexia [Unknown]
  - White blood cell count increased [Unknown]
  - Blood creatine phosphokinase increased [Unknown]
  - Haemolytic anaemia [Unknown]

NARRATIVE: CASE EVENT DATE: 201810
